FAERS Safety Report 8456103-8 (Version None)
Quarter: 2012Q2

REPORT INFORMATION
  Report Type: 
  Country: None (occurrence: None)
  Receive Date: 20120621
  Receipt Date: 20120618
  Transmission Date: 20120825
  Serious: Yes (Hospitalization)
  Sender: FDA-Public Use
  Company Number: PHHY2012FR052708

PATIENT
  Sex: Female

DRUGS (8)
  1. LEVOTHYROXINE SODIUM [Concomitant]
  2. PENTOXIFYLLINE [Suspect]
     Dosage: 10 MG, QD
  3. LEXOMIL [Concomitant]
  4. LASIX [Concomitant]
  5. FEMARA [Suspect]
     Dosage: 2.5 MG, QD
  6. ZOLPIDEM TARTRATE [Concomitant]
  7. CITALOPRAM HYDROBROMIDE [Suspect]
     Dosage: 20 MG, QD
  8. ACETAMINOPHEN [Concomitant]

REACTIONS (2)
  - INTERNATIONAL NORMALISED RATIO INCREASED [None]
  - MENOMETRORRHAGIA [None]
